FAERS Safety Report 7455184-8 (Version None)
Quarter: 2011Q2

REPORT INFORMATION
  Report Type: 
  Country: None (occurrence: None)
  Receive Date: 20110503
  Receipt Date: 20110420
  Transmission Date: 20111010
  Serious: Yes (Hospitalization, Other)
  Sender: FDA-Public Use
  Company Number: PHEH2009US11085

PATIENT
  Sex: Female

DRUGS (1)
  1. ZOMETA [Suspect]
     Indication: BREAST CANCER METASTATIC
     Route: 042
     Dates: end: 20090601

REACTIONS (52)
  - BONE DISORDER [None]
  - URINARY TRACT INFECTION [None]
  - ASCITES [None]
  - SPINAL COLUMN STENOSIS [None]
  - VOMITING [None]
  - PLEURAL EFFUSION [None]
  - OSTEONECROSIS OF JAW [None]
  - ANHEDONIA [None]
  - THYROID DISORDER [None]
  - SINUSITIS [None]
  - CONSTIPATION [None]
  - ERYTHEMA [None]
  - ADNEXA UTERI MASS [None]
  - FEBRILE NEUTROPENIA [None]
  - ANXIETY [None]
  - MOUTH ULCERATION [None]
  - ELECTROLYTE IMBALANCE [None]
  - TYPE 2 DIABETES MELLITUS [None]
  - METASTASES TO OVARY [None]
  - PAIN [None]
  - IMPETIGO [None]
  - DEHYDRATION [None]
  - COUGH [None]
  - PYREXIA [None]
  - HYPONATRAEMIA [None]
  - BACK PAIN [None]
  - INSOMNIA [None]
  - GASTROOESOPHAGEAL REFLUX DISEASE [None]
  - OSTEOSCLEROSIS [None]
  - OSTEOARTHRITIS [None]
  - DEEP VEIN THROMBOSIS [None]
  - DEPRESSION [None]
  - ABDOMINAL PAIN [None]
  - LATEX ALLERGY [None]
  - HEPATIC STEATOSIS [None]
  - IMPAIRED HEALING [None]
  - PANCYTOPENIA [None]
  - INGROWING NAIL [None]
  - NAUSEA [None]
  - DYSPEPSIA [None]
  - METASTASES TO LUNG [None]
  - METASTASES TO LIVER [None]
  - PLEURAL FIBROSIS [None]
  - THROMBOCYTOSIS [None]
  - PNEUMONIA [None]
  - PELVIC PAIN [None]
  - HYPOKALAEMIA [None]
  - SERRATIA SEPSIS [None]
  - INJURY [None]
  - UPPER RESPIRATORY TRACT INFECTION [None]
  - OTITIS EXTERNA [None]
  - RESPIRATORY FAILURE [None]
